FAERS Safety Report 20981179 (Version 1)
Quarter: 2022Q2

REPORT INFORMATION
  Report Type: Spontaneous
  Country: US (occurrence: US)
  Receive Date: 20220620
  Receipt Date: 20220620
  Transmission Date: 20220721
  Serious: No
  Sender: FDA-Public Use
  Company Number: US-PFIZER INC-PV202200003405

PATIENT
  Age: 70 Year
  Sex: Female

DRUGS (4)
  1. CIPROFLOXACIN [Suspect]
     Active Substance: CIPROFLOXACIN
     Indication: Urinary tract infection
     Dosage: UNK
     Dates: start: 202204, end: 202204
  2. LENVIMA [Suspect]
     Active Substance: LENVATINIB
     Indication: Thyroid cancer
     Dosage: UNK
     Dates: start: 20211102
  3. LENVIMA [Suspect]
     Active Substance: LENVATINIB
     Indication: Metastases to lung
     Dosage: UNK
     Dates: start: 20220405, end: 20220419
  4. LENVIMA [Suspect]
     Active Substance: LENVATINIB
     Dosage: 10 MG, DAILY
     Dates: start: 202204

REACTIONS (1)
  - Heart rate increased [Unknown]

NARRATIVE: CASE EVENT DATE: 20220401
